FAERS Safety Report 24809688 (Version 1)
Quarter: 2025Q1

REPORT INFORMATION
  Report Type: Spontaneous
  Country: US (occurrence: US)
  Receive Date: 20250106
  Receipt Date: 20250106
  Transmission Date: 20250409
  Serious: Yes (Other)
  Sender: NOVARTIS
  Company Number: US-002147023-NVSC2024US247822

PATIENT
  Age: 19 Year
  Sex: Female

DRUGS (2)
  1. TRAMETINIB [Suspect]
     Active Substance: TRAMETINIB
     Indication: Wyburn Mason^s syndrome
     Route: 065
  2. TRAMETINIB [Suspect]
     Active Substance: TRAMETINIB
     Indication: Arteriovenous malformation

REACTIONS (6)
  - Cerebral ischaemia [Unknown]
  - Carotid artery stenosis [Unknown]
  - Migraine [Recovering/Resolving]
  - Blindness unilateral [Recovering/Resolving]
  - Hemianaesthesia [Recovering/Resolving]
  - Product use in unapproved indication [Unknown]
